FAERS Safety Report 16197024 (Version 4)
Quarter: 2019Q4

REPORT INFORMATION
  Report Type: Spontaneous
  Country: US (occurrence: US)
  Receive Date: 20190415
  Receipt Date: 20191209
  Transmission Date: 20200122
  Serious: No
  Sender: FDA-Public Use
  Company Number: US-PFIZER INC-2019147300

PATIENT
  Age: 59 Year
  Sex: Female
  Weight: 69.39 kg

DRUGS (2)
  1. PREMPRO [Suspect]
     Active Substance: ESTROGENS, CONJUGATED\MEDROXYPROGESTERONE ACETATE
     Indication: OESTROGEN REPLACEMENT THERAPY
     Dosage: 1 DF(ESTROGENS CONJUGATED: 0.3 MG; MEDROXYPROGESTERONE ACETATE 1.5 MG), 1X/DAY
     Route: 048
  2. PREMPRO [Suspect]
     Active Substance: ESTROGENS, CONJUGATED\MEDROXYPROGESTERONE ACETATE
     Dosage: QUANTITY FOR 90 DAYS: 2520

REACTIONS (3)
  - Nervousness [Unknown]
  - Product dose omission [Unknown]
  - Prescribed overdose [Unknown]

NARRATIVE: CASE EVENT DATE: 201901
